FAERS Safety Report 8766114 (Version 2)
Quarter: 2013Q4

REPORT INFORMATION
  Report Type: Report from Study
  Country: JP (occurrence: JP)
  Receive Date: 20120904
  Receipt Date: 20131101
  Transmission Date: 20140711
  Serious: Yes (Hospitalization)
  Sender: FDA-Public Use
  Company Number: JP-009507513-1208JPN010276

PATIENT
  Age: 74 Year
  Sex: Female
  Weight: 45 kg

DRUGS (6)
  1. PEGINTRON [Suspect]
     Indication: HEPATITIS C
     Dosage: 1.5 MICROGRAM PER KILOGRAM, QW
     Route: 058
     Dates: start: 20120730, end: 20120731
  2. REBETOL [Suspect]
     Indication: HEPATITIS C
     Dosage: DAILY DOSE UNKNOWN
     Route: 048
     Dates: start: 20120730, end: 20120731
  3. TELAVIC [Suspect]
     Indication: HEPATITIS C
     Dosage: DOSE: 1500 MG, CUMULATIVE DOSE: 1500 MG
     Route: 048
     Dates: start: 20120730, end: 20120731
  4. CONIEL [Concomitant]
     Indication: PROPHYLAXIS
     Dosage: 4 MG, QD
     Route: 048
     Dates: start: 20100914
  5. PARIET [Concomitant]
     Indication: PROPHYLAXIS
     Dosage: FORMULATION:POR
     Route: 048
     Dates: start: 20100914
  6. BENET [Concomitant]
     Indication: PROPHYLAXIS
     Dosage: 17.5 MG, QD
     Dates: start: 20100914

REACTIONS (1)
  - Blood pressure decreased [Recovered/Resolved]
